FAERS Safety Report 5972323-6 (Version None)
Quarter: 2008Q4

REPORT INFORMATION
  Report Type: 
  Country: None (occurrence: None)
  Receive Date: 20081201
  Receipt Date: 20080903
  Transmission Date: 20090506
  Serious: No
  Sender: FDA-Public Use
  Company Number: US-TEVA-177061USA

PATIENT
  Sex: Male
  Weight: 86.26 kg

DRUGS (3)
  1. SALBUTAMOL SULFATE INHALATION, 0.09 MG [Suspect]
     Dosage: 2 PUFFS PRN
     Route: 055
  2. SALMETEROL XINAFOATE [Concomitant]
  3. TRIAMCINOLONE ACETONIDE [Concomitant]

REACTIONS (1)
  - THERAPEUTIC RESPONSE DELAYED [None]
